FAERS Safety Report 9262150 (Version 2)
Quarter: 2013Q2

REPORT INFORMATION
  Report Type: Spontaneous
  Country: IL (occurrence: IL)
  Receive Date: 20130430
  Receipt Date: 20130507
  Transmission Date: 20140414
  Serious: Yes (Hospitalization)
  Sender: FDA-Public Use
  Company Number: IL-AMGEN-ISRSP2013029369

PATIENT
  Age: 40 Year
  Sex: Female

DRUGS (4)
  1. NEULASTIM [Suspect]
     Indication: PROPHYLAXIS
     Dosage: UNK
     Route: 065
  2. EPIRUBICIN                         /00699302/ [Concomitant]
     Indication: BREAST CANCER
     Dosage: UNK
  3. ADRIAMYCIN                         /00330902/ [Concomitant]
     Indication: BREAST CANCER
     Dosage: UNK
     Dates: start: 20130221
  4. CYTOXAN [Concomitant]
     Indication: BREAST CANCER
     Dosage: UNK
     Dates: start: 20130221

REACTIONS (1)
  - Febrile neutropenia [Recovered/Resolved]
